FAERS Safety Report 16183803 (Version 2)
Quarter: 2019Q2

REPORT INFORMATION
  Report Type: Report from Study
  Country: US (occurrence: US)
  Receive Date: 20190411
  Receipt Date: 20190425
  Transmission Date: 20190711
  Serious: Yes (Other)
  Sender: FDA-Public Use
  Company Number: US-ROCHE-2294299

PATIENT
  Sex: Female

DRUGS (2)
  1. MUCINEX [Concomitant]
     Active Substance: GUAIFENESIN
  2. ESBRIET [Suspect]
     Active Substance: PIRFENIDONE
     Indication: IDIOPATHIC PULMONARY FIBROSIS
     Route: 048

REACTIONS (3)
  - Gait disturbance [Unknown]
  - Malaise [Unknown]
  - Cough [Unknown]
